FAERS Safety Report 4553435-0 (Version None)
Quarter: 2005Q1

REPORT INFORMATION
  Report Type: 
  Country: None (occurrence: None)
  Receive Date: 20050112
  Receipt Date: 20041230
  Transmission Date: 20050727
  Serious: Yes (Hospitalization)
  Sender: FDA-Public Use
  Company Number: 2005001403

PATIENT
  Age: 78 Year
  Sex: Female

DRUGS (4)
  1. ZITHROMAX [Suspect]
     Indication: OTITIS MEDIA ACUTE
     Dosage: 500 MG (1 IN 1 D), INTRAVENOUS
     Route: 042
     Dates: start: 20041216, end: 20041226
  2. CEFTRIAXONE [Suspect]
     Indication: OTITIS MEDIA ACUTE
     Dosage: 2 GRAM (1 IN 1 D), INTRAVENOUS
     Route: 042
     Dates: start: 20041216, end: 20041226
  3. RANITIDINE HYDROCHLORIDE [Concomitant]
  4. METOCLOPRAMIDE HYDROCHLORIDE [Concomitant]

REACTIONS (2)
  - PRURITUS [None]
  - RASH MACULO-PAPULAR [None]
